FAERS Safety Report 8954458 (Version 2)
Quarter: 2013Q1

REPORT INFORMATION
  Report Type: Spontaneous
  Country: GB (occurrence: GB)
  Receive Date: 20121210
  Receipt Date: 20130115
  Transmission Date: 20140127
  Serious: Yes (Other)
  Sender: FDA-Public Use
  Company Number: PHFR2012GB006317

PATIENT
  Sex: Male

DRUGS (4)
  1. NILOTINIB [Suspect]
     Indication: CHRONIC MYELOID LEUKAEMIA
     Dosage: 800 MG, UNK
     Route: 048
     Dates: start: 201106
  2. ASPIRIN [Concomitant]
  3. PRAVASTATIN [Concomitant]
  4. TEMAZEPAM [Concomitant]

REACTIONS (6)
  - Thrombosis in device [Unknown]
  - Cardiac disorder [Unknown]
  - Intermittent claudication [Unknown]
  - Peripheral vascular disorder [Unknown]
  - Concomitant disease aggravated [Unknown]
  - Myocardial infarction [Unknown]
